FAERS Safety Report 14922571 (Version 2)
Quarter: 2018Q2

REPORT INFORMATION
  Report Type: Spontaneous
  Country: US (occurrence: US)
  Receive Date: 20180522
  Receipt Date: 20180525
  Transmission Date: 20180711
  Serious: No
  Sender: FDA-Public Use
  Company Number: US-PFIZER INC-2018208512

PATIENT
  Age: 64 Year
  Sex: Female

DRUGS (1)
  1. EFFEXOR XR [Suspect]
     Active Substance: VENLAFAXINE HYDROCHLORIDE
     Dosage: 150 MG, UNK (EFFEXOR XR 150 MG CAPSULE / QUANTITY=180 / DAY SUPPLY=90)

REACTIONS (1)
  - Prescribed overdose [Unknown]
